FAERS Safety Report 7910622-9 (Version None)
Quarter: 2011Q4

REPORT INFORMATION
  Report Type: 
  Country: None (occurrence: None)
  Receive Date: 20111111
  Receipt Date: 20111103
  Transmission Date: 20120403
  Serious: Yes (Hospitalization, Other)
  Sender: FDA-Public Use
  Company Number: US-US-EMD SERONO, INC.-7005479

PATIENT
  Sex: Female

DRUGS (9)
  1. CLONAZEPAM [Concomitant]
  2. FLUDROCORTISONE ACETATE [Concomitant]
  3. REBIF [Suspect]
     Indication: MULTIPLE SCLEROSIS
     Route: 058
     Dates: start: 20060914
  4. HYDROCORTISONE [Concomitant]
  5. SYNTHROID [Concomitant]
  6. PREDNISONE TAB [Concomitant]
     Indication: UVEITIS
  7. ZOLOFT [Concomitant]
  8. METHOTREXATE [Concomitant]
     Indication: UVEITIS
  9. METHAZOLAMIDE [Concomitant]

REACTIONS (13)
  - PERIPHERAL VASCULAR DISORDER [None]
  - HYPOTHYROIDISM [None]
  - INJECTION SITE PAIN [None]
  - LOSS OF CONSCIOUSNESS [None]
  - INFLUENZA LIKE ILLNESS [None]
  - ADRENAL INSUFFICIENCY [None]
  - HYPOTENSION [None]
  - DIZZINESS [None]
  - HEART RATE DECREASED [None]
  - PARAESTHESIA [None]
  - DYSKINESIA [None]
  - HYPOAESTHESIA [None]
  - PILOERECTION [None]
